FAERS Safety Report 8264850-6 (Version None)
Quarter: 2012Q2

REPORT INFORMATION
  Report Type: 
  Country: None (occurrence: None)
  Receive Date: 20120406
  Receipt Date: 20120319
  Transmission Date: 20120825
  Serious: Yes (Hospitalization)
  Sender: FDA-Public Use
  Company Number: FR-SANOFI-AVENTIS-2009SA011556

PATIENT
  Age: 76 Year
  Sex: Male
  Weight: 74 kg

DRUGS (21)
  1. AFLIBERCEPT [Suspect]
     Indication: PROSTATE CANCER METASTATIC
     Route: 042
     Dates: start: 20091217, end: 20091217
  2. LEUPROLIDE ACETATE [Concomitant]
     Dates: start: 20090706
  3. CORONARY VASODILATORS [Concomitant]
     Dates: start: 20091106
  4. PERINDOPRIL ERBUMINE [Concomitant]
     Dates: start: 20090425
  5. ESOMEPRAZOLE [Concomitant]
     Dates: start: 20091123
  6. GLUTAMINE [Concomitant]
     Dates: start: 20091123, end: 20091207
  7. CEFIXIME [Concomitant]
     Dates: start: 20091204, end: 20091208
  8. MYCOSTATIN [Concomitant]
     Dates: start: 20091130, end: 20091207
  9. PLAVIX [Concomitant]
     Dates: start: 20090401
  10. AFLIBERCEPT [Suspect]
     Route: 042
     Dates: start: 20091126, end: 20091126
  11. FLUCONAZOLE [Concomitant]
     Dates: start: 20091130, end: 20091207
  12. DOCETAXEL [Suspect]
     Indication: PROSTATE CANCER METASTATIC
     Route: 042
     Dates: start: 20091217, end: 20091217
  13. PREDNISONE [Suspect]
     Indication: PROSTATE CANCER METASTATIC
     Dates: start: 20091126, end: 20091217
  14. DOMPERIDONE [Concomitant]
     Dates: start: 20091123, end: 20091207
  15. DEXAMETHASONE [Concomitant]
     Dates: start: 20091125, end: 20091127
  16. CRESTOR [Concomitant]
     Dates: start: 20091118
  17. KYTRIL [Concomitant]
     Dates: start: 20091126, end: 20091126
  18. DOCETAXEL [Suspect]
     Route: 042
     Dates: start: 20091126, end: 20091126
  19. CALCIUM CARBONATE [Concomitant]
     Dates: start: 20091106
  20. OFLOXACIN [Concomitant]
     Dates: start: 20091204, end: 20091208
  21. KABIVEN [Concomitant]
     Dates: start: 20091207, end: 20091208

REACTIONS (1)
  - FAECALITH [None]
